FAERS Safety Report 9105349 (Version 2)
Quarter: 2013Q2

REPORT INFORMATION
  Report Type: Report from Study
  Country: DE (occurrence: DE)
  Receive Date: 20130220
  Receipt Date: 20130404
  Transmission Date: 20140414
  Serious: Yes (Hospitalization, Other)
  Sender: FDA-Public Use
  Company Number: DE-ABBOTT-13P-062-1050490-00

PATIENT
  Age: 19 Year
  Sex: Male

DRUGS (3)
  1. HUMIRA [Suspect]
     Indication: CROHN^S DISEASE
     Route: 058
     Dates: start: 20100321, end: 201204
  2. PENTASA [Concomitant]
     Indication: PRODUCT USED FOR UNKNOWN INDICATION
  3. CLAVERSAL [Concomitant]
     Indication: PRODUCT USED FOR UNKNOWN INDICATION

REACTIONS (9)
  - Jejunal stenosis [Unknown]
  - Encephalitis [Not Recovered/Not Resolved]
  - Fructose intolerance [Not Recovered/Not Resolved]
  - Aphthous stomatitis [Unknown]
  - Confusional state [Unknown]
  - Aphasia [Unknown]
  - Disorientation [Unknown]
  - Personality change [Unknown]
  - Eating disorder [Unknown]
